FAERS Safety Report 9766008 (Version 1)
Quarter: 2013Q4

REPORT INFORMATION
  Report Type: Spontaneous
  Country: US (occurrence: None)
  Receive Date: 20131216
  Receipt Date: 20131216
  Transmission Date: 20140711
  Serious: No
  Sender: FDA-Public Use
  Company Number: None

PATIENT
  Age: 8 Year
  Sex: Male
  Weight: 36.29 kg

DRUGS (1)
  1. METHYLPHENIDATE ER 36 MG [Suspect]
     Indication: ATTENTION DEFICIT/HYPERACTIVITY DISORDER
     Route: 048
     Dates: start: 20131203, end: 20131215

REACTIONS (5)
  - Gastrointestinal disorder [None]
  - Anxiety [None]
  - Irritability [None]
  - Feeling abnormal [None]
  - Product quality issue [None]
